FAERS Safety Report 7529191-0 (Version None)
Quarter: 2011Q2

REPORT INFORMATION
  Report Type: 
  Country: None (occurrence: None)
  Receive Date: 20110607
  Receipt Date: 20050401
  Transmission Date: 20111010
  Serious: Yes (Death)
  Sender: FDA-Public Use
  Company Number: PHHO2005CA04006

PATIENT
  Sex: Female

DRUGS (4)
  1. LAMOTRIGINE [Concomitant]
     Dosage: UNK
  2. CLOZARIL [Suspect]
     Indication: DELUSIONAL DISORDER, UNSPECIFIED TYPE
     Dosage: UNK, UNK
     Route: 048
     Dates: start: 20040205
  3. EFFEXOR [Concomitant]
     Dosage: UNK
  4. RANITIDINE [Concomitant]
     Dosage: UNK

REACTIONS (4)
  - RESPIRATORY DISTRESS [None]
  - DEPRESSED LEVEL OF CONSCIOUSNESS [None]
  - PNEUMONIA [None]
  - PYREXIA [None]
